FAERS Safety Report 20852403 (Version 2)
Quarter: 2022Q2

REPORT INFORMATION
  Report Type: Spontaneous
  Country: US (occurrence: US)
  Receive Date: 20220520
  Receipt Date: 20220630
  Transmission Date: 20220721
  Serious: No
  Sender: FDA-Public Use
  Company Number: US-PFIZER INC-202200705255

PATIENT
  Age: 70 Year
  Sex: Male

DRUGS (1)
  1. GENOTROPIN [Suspect]
     Active Substance: SOMATROPIN
     Indication: Muscle strength abnormal
     Dosage: INJECTED 5 DAYS A WEEK

REACTIONS (3)
  - Off label use [Unknown]
  - Device power source issue [Unknown]
  - Drug dose omission by device [Not Recovered/Not Resolved]
